FAERS Safety Report 9732856 (Version 4)
Quarter: 2014Q2

REPORT INFORMATION
  Report Type: Spontaneous
  Country: US (occurrence: US)
  Receive Date: 20131205
  Receipt Date: 20140422
  Transmission Date: 20141212
  Serious: Yes (Death)
  Sender: FDA-Public Use
  Company Number: US-BRISTOL-MYERS SQUIBB COMPANY-19867332

PATIENT
  Age: 76 Year
  Sex: Female

DRUGS (1)
  1. BYETTA [Suspect]
     Indication: TYPE 2 DIABETES MELLITUS
     Dosage: LAST DOSE ON MAR10. DISPENSED:3JL06,1AG06,2S06,31O06,8D06,5JAN07,6FE07
     Dates: start: 20060606, end: 201003

REACTIONS (1)
  - Pancreatic carcinoma [Fatal]
